FAERS Safety Report 18565596 (Version 1)
Quarter: 2020Q4

REPORT INFORMATION
  Report Type: Spontaneous
  Country: US (occurrence: US)
  Receive Date: 20201201
  Receipt Date: 20201201
  Transmission Date: 20210114
  Serious: Yes (Hospitalization)
  Sender: FDA-Public Use
  Company Number: None

PATIENT
  Age: 59 Year
  Sex: Male
  Weight: 100.4 kg

DRUGS (1)
  1. NIVOLUMAB [Suspect]
     Active Substance: NIVOLUMAB
     Indication: OESOPHAGEAL ADENOCARCINOMA
     Dosage: ?          OTHER FREQUENCY:Q2WEEKS;?
     Route: 042
     Dates: start: 20200731

REACTIONS (3)
  - Dyspnoea [None]
  - Aspartate aminotransferase increased [None]
  - Pleural effusion [None]

NARRATIVE: CASE EVENT DATE: 20201125
